FAERS Safety Report 10985298 (Version 1)
Quarter: 2015Q2

REPORT INFORMATION
  Report Type: Spontaneous
  Country: US (occurrence: US)
  Receive Date: 20150404
  Receipt Date: 20150404
  Transmission Date: 20150821
  Serious: No
  Sender: FDA-Public Use
  Company Number: US-SA-2014SA033927

PATIENT
  Age: 65 Year
  Sex: Female

DRUGS (2)
  1. ALL OTHER THERAPEUTIC PRODUCTS [Concomitant]
     Active Substance: UNSPECIFIED INGREDIENT
     Indication: TEMPOROMANDIBULAR JOINT SYNDROME
  2. ALLEGRA-D [Suspect]
     Active Substance: FEXOFENADINE\PSEUDOEPHEDRINE
     Indication: HYPERSENSITIVITY
     Dosage: DOSAGE: 180MG/240MG?FREQUENCY: DAILY AS NEEDED
     Route: 048
     Dates: end: 20140311

REACTIONS (3)
  - Skin burning sensation [Not Recovered/Not Resolved]
  - Drug dose omission [Unknown]
  - Wrong technique in drug usage process [Unknown]
